FAERS Safety Report 20534441 (Version 4)
Quarter: 2022Q2

REPORT INFORMATION
  Report Type: Spontaneous
  Country: US (occurrence: US)
  Receive Date: 20220302
  Receipt Date: 20220530
  Transmission Date: 20220720
  Serious: No
  Sender: FDA-Public Use
  Company Number: US-GLAXOSMITHKLINE-US2022AMR036733

PATIENT
  Sex: Female

DRUGS (2)
  1. ZEJULA [Suspect]
     Active Substance: NIRAPARIB
     Indication: Product used for unknown indication
     Dosage: 100 MG, BID
  2. ZEJULA [Suspect]
     Active Substance: NIRAPARIB
     Dosage: 200 MG, QD
     Dates: start: 20220223

REACTIONS (7)
  - Insomnia [Unknown]
  - Arthralgia [Unknown]
  - Renal disorder [Unknown]
  - Renal function test abnormal [Recovering/Resolving]
  - Creatinine renal clearance increased [Unknown]
  - Off label use [Unknown]
  - Drug ineffective [Unknown]
